FAERS Safety Report 4758603-0 (Version None)
Quarter: 2005Q3

REPORT INFORMATION
  Report Type: 
  Country: None (occurrence: None)
  Receive Date: 20050829
  Receipt Date: 20050818
  Transmission Date: 20060218
  Serious: Yes (Hospitalization)
  Sender: FDA-Public Use
  Company Number: SGBI-2005-00379

PATIENT
  Age: 60 Year
  Sex: Male

DRUGS (7)
  1. ANAGRELIDE HCL [Suspect]
     Indication: THROMBOCYTOPENIA
     Dosage: 1 MG, 2X/DAY:BID, ORAL
     Route: 048
     Dates: start: 20030101
  2. OMEPRAZOLE [Concomitant]
  3. ALLOPURINOL [Concomitant]
  4. ATORVASTATIN CALCIUM [Concomitant]
  5. ATENOLOL [Concomitant]
  6. CLOPIDOGREL BISULFATE [Concomitant]
  7. DIGOXIN [Concomitant]

REACTIONS (7)
  - ARTHRALGIA [None]
  - AUTOIMMUNE DISORDER [None]
  - EFFUSION [None]
  - PERICARDITIS [None]
  - POLYARTHRITIS [None]
  - RENAL IMPAIRMENT [None]
  - SYNOVITIS [None]
